FAERS Safety Report 11883447 (Version 6)
Quarter: 2016Q2

REPORT INFORMATION
  Report Type: Spontaneous
  Country: US (occurrence: US)
  Receive Date: 20151231
  Receipt Date: 20160623
  Transmission Date: 20160815
  Serious: Yes (Hospitalization)
  Sender: FDA-Public Use
  Company Number: US-ACTELION-A-NJ2015-129158

PATIENT
  Age: 1 Year
  Sex: Male

DRUGS (2)
  1. TRACLEER [Suspect]
     Active Substance: BOSENTAN
     Indication: PULMONARY HYPERTENSION
     Dosage: 9 MG, BID
     Route: 048
     Dates: start: 20150909
  2. TRACLEER [Suspect]
     Active Substance: BOSENTAN
     Dosage: 20 MG, BID
     Route: 048
     Dates: end: 20160306

REACTIONS (5)
  - Aspartate aminotransferase increased [Recovered/Resolved]
  - Liver function test increased [Recovered/Resolved]
  - Transplant evaluation [Unknown]
  - Alanine aminotransferase increased [Recovered/Resolved]
  - Transplant [Unknown]

NARRATIVE: CASE EVENT DATE: 20151215
